FAERS Safety Report 13591993 (Version 3)
Quarter: 2017Q4

REPORT INFORMATION
  Report Type: Report from Study
  Country: US (occurrence: US)
  Receive Date: 20170530
  Receipt Date: 20171115
  Transmission Date: 20180320
  Serious: Yes (Life-Threatening, Hospitalization)
  Sender: FDA-Public Use
  Company Number: US-ROCHE-1940626

PATIENT
  Age: 54 Year
  Sex: Female
  Weight: 64 kg

DRUGS (32)
  1. CALAMINE LOTION [Concomitant]
     Active Substance: CALAMINE LOTION
     Route: 061
  2. GUAIFENESIN. [Concomitant]
     Active Substance: GUAIFENESIN
     Dosage: 100MG/5ML ORAL LIQUID
     Route: 048
  3. TRAMADOL. [Concomitant]
     Active Substance: TRAMADOL
     Route: 048
  4. GUADECITABINE [Suspect]
     Active Substance: GUADECITABINE
     Route: 058
     Dates: start: 20170609, end: 20170613
  5. VANCOMYCIN [Concomitant]
     Active Substance: VANCOMYCIN
     Indication: RALES
     Route: 042
  6. BENZOCAINE. [Concomitant]
     Active Substance: BENZOCAINE
     Dosage: 20% MUCOUS MEMBRANE GEL
     Route: 061
  7. SARGRAMOSTIM [Concomitant]
     Active Substance: SARGRAMOSTIM
     Route: 058
  8. AMERICAINE OINTMENT [Concomitant]
     Dosage: RECTAL OINTMENT
     Route: 061
  9. BENADRYL [Concomitant]
     Active Substance: DIPHENHYDRAMINE HYDROCHLORIDE
     Route: 048
  10. PEPCID (UNITED STATES) [Concomitant]
     Route: 065
  11. VORICONAZOLE. [Concomitant]
     Active Substance: VORICONAZOLE
     Route: 048
  12. BENAZEPRIL [Concomitant]
     Active Substance: BENAZEPRIL HYDROCHLORIDE
     Route: 048
  13. FOLIC ACID. [Concomitant]
     Active Substance: FOLIC ACID
     Route: 048
  14. TYLENOL [Concomitant]
     Active Substance: ACETAMINOPHEN
     Route: 048
  15. GUADECITABINE [Suspect]
     Active Substance: GUADECITABINE
     Route: 058
     Dates: start: 20171023, end: 20171027
  16. LACTATED RINGERS SOLUTION [Concomitant]
     Active Substance: CALCIUM CHLORIDE\POTASSIUM CHLORIDE\SODIUM CHLORIDE\SODIUM LACTATE
     Route: 065
  17. DECITABINE. [Concomitant]
     Active Substance: DECITABINE
  18. VORICONAZOLE. [Concomitant]
     Active Substance: VORICONAZOLE
     Dosage: IN THE MORNING
     Route: 048
  19. COLACE [Concomitant]
     Active Substance: DOCUSATE SODIUM
     Route: 048
  20. ATEZOLIZUMAB. [Suspect]
     Active Substance: ATEZOLIZUMAB
     Dosage: CYCLE 2 DAY 8
     Route: 042
     Dates: start: 20170616
  21. NORMAL SALINE [Concomitant]
     Active Substance: SODIUM CHLORIDE
     Route: 065
  22. VIDAZA [Concomitant]
     Active Substance: AZACITIDINE
  23. MIRALAX [Concomitant]
     Active Substance: POLYETHYLENE GLYCOL 3350
     Route: 048
  24. HYDROCORTISONE. [Concomitant]
     Active Substance: HYDROCORTISONE
     Route: 061
  25. PERI-COLACE [Concomitant]
     Active Substance: CASANTHRANOL\DOCUSATE SODIUM
     Dosage: 50MG-8.6MG
     Route: 048
  26. SODIUM CHLORIDE. [Concomitant]
     Active Substance: SODIUM CHLORIDE
     Route: 040
  27. RIFAXIMIN. [Concomitant]
     Active Substance: RIFAXIMIN
     Route: 048
  28. ATEZOLIZUMAB. [Suspect]
     Active Substance: ATEZOLIZUMAB
     Indication: MYELODYSPLASTIC SYNDROME
     Dosage: DAY 8 THROUGH 22
     Route: 042
     Dates: start: 20170515
  29. ATEZOLIZUMAB. [Suspect]
     Active Substance: ATEZOLIZUMAB
     Dosage: DAY 8 THROUGH 22
     Route: 042
     Dates: start: 20171030
  30. GUADECITABINE [Suspect]
     Active Substance: GUADECITABINE
     Indication: MYELODYSPLASTIC SYNDROME
     Route: 058
     Dates: start: 20170508, end: 20170512
  31. BENADRYL [Concomitant]
     Active Substance: DIPHENHYDRAMINE HYDROCHLORIDE
     Route: 048
  32. TYLENOL [Concomitant]
     Active Substance: ACETAMINOPHEN
     Route: 048

REACTIONS (3)
  - Febrile neutropenia [Unknown]
  - Febrile neutropenia [Recovered/Resolved]
  - Thrombocytopenia [Unknown]

NARRATIVE: CASE EVENT DATE: 20170522
